FAERS Safety Report 6555598-4 (Version None)
Quarter: 2010Q1

REPORT INFORMATION
  Report Type: 
  Country: None (occurrence: None)
  Receive Date: 20100128
  Receipt Date: 20091207
  Transmission Date: 20100710
  Serious: Yes (Hospitalization)
  Sender: FDA-Public Use
  Company Number: FR-SANOFI-AVENTIS-2009SA011308

PATIENT
  Age: 54 Year
  Sex: Female

DRUGS (8)
  1. OXALIPLATIN [Suspect]
     Indication: COLON CANCER
     Route: 041
     Dates: start: 20070404, end: 20070404
  2. OXALIPLATIN [Suspect]
     Route: 041
     Dates: start: 20070502, end: 20070502
  3. CETUXIMAB [Suspect]
     Indication: COLON CANCER
     Route: 042
     Dates: start: 20070404, end: 20070404
  4. CETUXIMAB [Suspect]
     Route: 042
     Dates: start: 20070502, end: 20070502
  5. FLUOROURACIL [Suspect]
     Indication: COLON CANCER
     Route: 042
     Dates: start: 20070404, end: 20070404
  6. FLUOROURACIL [Suspect]
     Route: 042
     Dates: start: 20070502, end: 20070502
  7. FOLINIC ACID [Suspect]
     Indication: COLON CANCER
     Route: 042
     Dates: start: 20070404, end: 20070404
  8. FOLINIC ACID [Suspect]
     Route: 042
     Dates: start: 20070502, end: 20070502

REACTIONS (1)
  - DUODENAL ULCER [None]
